FAERS Safety Report 6525270-5 (Version None)
Quarter: 2010Q1

REPORT INFORMATION
  Report Type: 
  Country: None (occurrence: None)
  Receive Date: 20100104
  Receipt Date: 20091222
  Transmission Date: 20100710
  Serious: Yes (Hospitalization)
  Sender: FDA-Public Use
  Company Number: FR-PFIZER INC-2009312900

PATIENT
  Age: 40 Year
  Sex: Female

DRUGS (1)
  1. SOLU-MEDROL [Suspect]
     Indication: MULTIPLE SCLEROSIS
     Dosage: 3 DF, UNK
     Route: 042
     Dates: end: 20090701

REACTIONS (5)
  - CHILLS [None]
  - CIRCULATORY COLLAPSE [None]
  - ERYTHEMA [None]
  - FEELING COLD [None]
  - VOMITING [None]
